FAERS Safety Report 9420737 (Version 1)
Quarter: 2013Q3

REPORT INFORMATION
  Report Type: Spontaneous
  Country: US (occurrence: US)
  Receive Date: 20130725
  Receipt Date: 20130725
  Transmission Date: 20140515
  Serious: No
  Sender: FDA-Public Use
  Company Number: US-ABBOTT-13P-163-1095203-00

PATIENT
  Age: 76 Year
  Sex: Female
  Weight: 68.55 kg

DRUGS (6)
  1. SYNTHROID [Suspect]
     Indication: HYPOTHYROIDISM
     Dates: start: 201208
  2. TRAMADOL [Concomitant]
     Indication: PAIN
  3. TRAMADOL [Concomitant]
     Indication: OSTEOPOROSIS
  4. CARVEDIOL [Concomitant]
     Indication: HYPERTENSION
  5. DIOVAN [Concomitant]
     Indication: HYPERTENSION
  6. HYDROCHLOROTHIAZIDE [Concomitant]
     Indication: HYPERTENSION

REACTIONS (1)
  - Tachycardia [Not Recovered/Not Resolved]
